FAERS Safety Report 4277749-7 (Version None)
Quarter: 2004Q1

REPORT INFORMATION
  Report Type: 
  Country: None (occurrence: None)
  Receive Date: 20040121
  Receipt Date: 20040107
  Transmission Date: 20041129
  Serious: Yes (Life-Threatening, Hospitalization)
  Sender: FDA-Public Use
  Company Number: DE-SHR-03-018614

PATIENT
  Sex: Male
  Weight: 76 kg

DRUGS (1)
  1. QUADRAMET [Suspect]
     Indication: METASTASES TO BONE
     Dosage: 2.8 GBQ, 1 DOSE, INTRAVENOUS
     Route: 042
     Dates: start: 20030910, end: 20030910

REACTIONS (3)
  - HAEMORRHAGE [None]
  - PROCTITIS [None]
  - THROMBOCYTOPENIA [None]
